FAERS Safety Report 7921904-9 (Version None)
Quarter: 2011Q4

REPORT INFORMATION
  Report Type: 
  Country: None (occurrence: None)
  Receive Date: 20111117
  Receipt Date: 20111115
  Transmission Date: 20120403
  Serious: Yes (Other)
  Sender: FDA-Public Use
  Company Number: US-AMGEN-USASP2011019836

PATIENT
  Age: 71 Year
  Sex: Male
  Weight: 121.77 kg

DRUGS (2)
  1. IMMUNE GLOBULIN NOS [Concomitant]
     Indication: IDIOPATHIC THROMBOCYTOPENIC PURPURA
  2. NPLATE [Suspect]
     Indication: IDIOPATHIC THROMBOCYTOPENIC PURPURA
     Dosage: 123 MUG, Q2WK
     Route: 058
     Dates: start: 20110411

REACTIONS (3)
  - POLYCYTHAEMIA [None]
  - THERAPEUTIC RESPONSE DECREASED [None]
  - BONE MARROW RETICULIN FIBROSIS [None]
